FAERS Safety Report 21715449 (Version 2)
Quarter: 2023Q1

REPORT INFORMATION
  Report Type: Report from Study
  Country: GB (occurrence: GB)
  Receive Date: 20221212
  Receipt Date: 20230213
  Transmission Date: 20230418
  Serious: Yes (Death, Hospitalization, Other)
  Sender: FDA-Public Use
  Company Number: GB-ABBVIE-4213086

PATIENT
  Sex: Female
  Weight: 65 kg

DRUGS (12)
  1. CYTARABINE [Suspect]
     Active Substance: CYTARABINE
     Indication: Acute myeloid leukaemia
     Dosage: 20 MG/M2
     Dates: start: 20221107, end: 20221116
  2. VENETOCLAX [Suspect]
     Active Substance: VENETOCLAX
     Indication: Acute myeloid leukaemia
     Dosage: 100 MG
     Route: 050
     Dates: start: 20221107, end: 20221119
  3. ACYCLOVIR [Concomitant]
     Active Substance: ACYCLOVIR
     Indication: Antiviral prophylaxis
     Dosage: 400 MG
     Route: 050
     Dates: start: 20221101
  4. COCODAMOL [Concomitant]
     Active Substance: ACETAMINOPHEN\CODEINE PHOSPHATE
     Indication: Pain
     Dosage: 30/1500MG; TIME INTERVAL: 0.33 D;
     Route: 050
     Dates: start: 20221116, end: 20221118
  5. GRANULOCYTE COLONY-STIMULATING FACTOR NOS [Concomitant]
     Active Substance: GRANULOCYTE COLONY-STIMULATING FACTOR NOS
     Indication: Neutropenia
     Dosage: 48 MIU
     Route: 050
     Dates: start: 20221120, end: 20221120
  6. ACETAMINOPHEN [Concomitant]
     Active Substance: ACETAMINOPHEN
     Indication: Pain
     Dosage: 1G, TIME INTERVAL: 0.25 D
     Route: 050
     Dates: start: 20221029
  7. ONDANSETRON [Concomitant]
     Active Substance: ONDANSETRON
     Indication: Nausea
     Dosage: 8 MG
     Route: 050
     Dates: start: 20221108, end: 20221118
  8. CHLORHEXIDINE [Concomitant]
     Active Substance: CHLORHEXIDINE
     Indication: Oral pain
     Dosage: 10ML, TIME INTERVAL: 0.25 D
     Route: 061
     Dates: start: 20221104
  9. POSACONAZOLE [Concomitant]
     Active Substance: POSACONAZOLE
     Indication: Antifungal prophylaxis
     Dosage: 300 MG
     Route: 050
     Dates: start: 20221101, end: 20221119
  10. CODEINE [Concomitant]
     Active Substance: CODEINE
     Indication: Pain
     Dosage: 60 MG
     Route: 050
     Dates: start: 20221118
  11. FUROSEMIDE [Concomitant]
     Active Substance: FUROSEMIDE
     Indication: Lung consolidation
     Dosage: 40 MG
     Route: 050
     Dates: start: 20221120, end: 20221120
  12. METOCLOPRAMIDE [Concomitant]
     Active Substance: METOCLOPRAMIDE
     Indication: Nausea
     Dosage: 10MG, TIME INTERVAL: 0.33 D
     Route: 050
     Dates: start: 20221107

REACTIONS (7)
  - Neutropenic sepsis [Fatal]
  - Lower respiratory tract infection [Fatal]
  - Pneumonia [Not Recovered/Not Resolved]
  - Febrile neutropenia [Not Recovered/Not Resolved]
  - Body temperature increased [Unknown]
  - C-reactive protein increased [Unknown]
  - Oxygen saturation decreased [Unknown]

NARRATIVE: CASE EVENT DATE: 20221118
